FAERS Safety Report 14947117 (Version 1)
Quarter: 2018Q2

REPORT INFORMATION
  Report Type: Spontaneous
  Country: FR (occurrence: FR)
  Receive Date: 20180529
  Receipt Date: 20180529
  Transmission Date: 20180711
  Serious: Yes (Other)
  Sender: FDA-Public Use
  Company Number: FR-TEVA-2018-FR-898576

PATIENT
  Age: 70 Year
  Sex: Female

DRUGS (4)
  1. PREDNISOLONE TEVA 20 MG [Suspect]
     Active Substance: PREDNISOLONE
     Indication: SINUSITIS
     Dosage: 2 DF ON 18-MAY-2018 AND 1 DF IN THE MORNING ON 19-MAY-2018
     Route: 048
     Dates: start: 20180518, end: 20180519
  2. AMOXICILLIN. [Concomitant]
     Active Substance: AMOXICILLIN
     Indication: SINUSITIS
  3. IMOVANE [Concomitant]
     Active Substance: ZOPICLONE
     Indication: SLEEP DISORDER
     Dosage: STARTED 3 MONTHS AGO
  4. GUTRON [Concomitant]
     Active Substance: MIDODRINE
     Indication: BLOOD PRESSURE ABNORMAL
     Dosage: STARTED 3 MONTHS AGO

REACTIONS (2)
  - Visual impairment [Not Recovered/Not Resolved]
  - Retinopathy [Not Recovered/Not Resolved]

NARRATIVE: CASE EVENT DATE: 20180520
